FAERS Safety Report 6677231-3 (Version None)
Quarter: 2010Q2

REPORT INFORMATION
  Report Type: 
  Country: None (occurrence: None)
  Receive Date: 20100412
  Receipt Date: 20100408
  Transmission Date: 20101027
  Serious: Yes (Hospitalization, Other)
  Sender: FDA-Public Use
  Company Number: US-BRISTOL-MYERS SQUIBB COMPANY-15055387

PATIENT
  Age: 77 Year
  Sex: Female
  Weight: 97 kg

DRUGS (12)
  1. CARBOPLATIN [Suspect]
     Indication: OVARIAN CANCER RECURRENT
     Dosage: 31MAR08-21APR09;12MAY-13JUN08;15AUG-21OCT08;ON D1+15 OF A 28D CYC;03NOV09-24FEB10;INTERR 16MAR10;
     Route: 042
     Dates: start: 20091103
  2. GEMCITABINE HCL [Suspect]
     Indication: OVARIAN CANCER RECURRENT
     Dosage: ON DAY 1 AND 15 OF A 28DAY CYCLE;03NOV09-24FEB10(DAY 114);INTERRUPTED ON 16MAR2010
     Route: 042
     Dates: start: 20091103
  3. BEVACIZUMAB [Suspect]
     Indication: OVARIAN CANCER RECURRENT
     Dosage: ON DAY 1 AND 15 OF A 28DAY CYCLE;03NOV09-24FEB10;INTERRUPTED ON 16MAR2010
     Route: 042
     Dates: start: 20091103
  4. BENICAR [Concomitant]
  5. BENICAR HCT [Concomitant]
  6. LEVOTHYROXINE SODIUM [Concomitant]
  7. ASPIRIN [Concomitant]
  8. VITAMIN B6 [Concomitant]
  9. ICAPS [Concomitant]
  10. REGLAN [Concomitant]
  11. INDOMETHACIN [Concomitant]
  12. ZOFRAN [Concomitant]

REACTIONS (4)
  - DEHYDRATION [None]
  - HYPERKALAEMIA [None]
  - NAUSEA [None]
  - NEUTROPENIA [None]
